FAERS Safety Report 5901240-2 (Version None)
Quarter: 2008Q3

REPORT INFORMATION
  Report Type: 
  Country: None (occurrence: None)
  Receive Date: 20080929
  Receipt Date: 20080701
  Transmission Date: 20090109
  Serious: No
  Sender: FDA-Public Use
  Company Number: US-BRISTOL-MYERS SQUIBB COMPANY-14247423

PATIENT

DRUGS (1)
  1. ORENCIA [Suspect]
     Dosage: OVER 30 MINUTES
     Route: 042
     Dates: start: 20070701

REACTIONS (1)
  - DRUG EFFECT DECREASED [None]
